FAERS Safety Report 25947161 (Version 1)
Quarter: 2025Q4

REPORT INFORMATION
  Report Type: Spontaneous
  Country: SY (occurrence: SY)
  Receive Date: 20251022
  Receipt Date: 20251022
  Transmission Date: 20260119
  Serious: Yes (Hospitalization, Other)
  Sender: RANBAXY
  Company Number: SY-SUN PHARMACEUTICAL INDUSTRIES INC-2025R1-532454

PATIENT
  Sex: Male
  Weight: 3 kg

DRUGS (2)
  1. DIGOXIN [Suspect]
     Active Substance: DIGOXIN
     Indication: Hydrops foetalis
     Dosage: 0.5 MILLIGRAM FOR 2 DAYS
     Route: 064
  2. DIGOXIN [Suspect]
     Active Substance: DIGOXIN
     Indication: Atrial flutter
     Dosage: FOLLOWED BY 0.25 MILLIGRAM, DAILY
     Route: 064

REACTIONS (3)
  - Premature baby [Unknown]
  - Atrial flutter [Recovered/Resolved]
  - Foetal exposure during pregnancy [Unknown]
